FAERS Safety Report 10005870 (Version 2)
Quarter: 2014Q2

REPORT INFORMATION
  Report Type: Spontaneous
  Country: US (occurrence: US)
  Receive Date: 20140313
  Receipt Date: 20140507
  Transmission Date: 20141212
  Serious: No
  Sender: FDA-Public Use
  Company Number: US-009507513-1402USA010381

PATIENT
  Sex: Female

DRUGS (1)
  1. IMPLANON [Suspect]
     Dosage: ROD
     Route: 059
     Dates: start: 2009

REACTIONS (3)
  - Device difficult to use [Unknown]
  - Medical device complication [Unknown]
  - Incorrect drug administration duration [Unknown]
